FAERS Safety Report 8809676 (Version 1)
Quarter: 2012Q4

REPORT INFORMATION
  Report Type: 
  Country: US (occurrence: US)
  Receive Date: 20120926
  Receipt Date: 20120926
  Transmission Date: 20130627
  Serious: Yes (Other)
  Sender: FDA-Public Use
  Company Number: US-ROCHE-1127522

PATIENT
  Sex: Female

DRUGS (3)
  1. AVASTIN [Suspect]
     Indication: BRAIN NEOPLASM MALIGNANT
     Route: 065
  2. CPT-11 [Concomitant]
     Indication: PRODUCT USED FOR UNKNOWN INDICATION
  3. ADRIAMYCIN [Concomitant]

REACTIONS (3)
  - Disease progression [Unknown]
  - Convulsion [Unknown]
  - Gait disturbance [Unknown]
